FAERS Safety Report 9345561 (Version 1)
Quarter: 2013Q2

REPORT INFORMATION
  Report Type: Report from Study
  Country: US (occurrence: US)
  Receive Date: 20130613
  Receipt Date: 20130613
  Transmission Date: 20140414
  Serious: Yes (Other)
  Sender: FDA-Public Use
  Company Number: US-ASTRAZENECA-2013SE34103

PATIENT
  Age: 28 Year
  Sex: Male

DRUGS (1)
  1. PULMICORT FLEXHALER [Suspect]
     Route: 055

REACTIONS (2)
  - Neoplasm malignant [Unknown]
  - Bronchial obstruction [Unknown]
